FAERS Safety Report 15750303 (Version 1)
Quarter: 2018Q4

REPORT INFORMATION
  Report Type: Report from Study
  Country: US (occurrence: US)
  Receive Date: 20181221
  Receipt Date: 20181221
  Transmission Date: 20190205
  Serious: Yes (Hospitalization)
  Sender: FDA-Public Use
  Company Number: US-JNJFOC-20181218000

PATIENT
  Age: 56 Year
  Sex: Male
  Weight: 102 kg

DRUGS (1)
  1. RIVAROXABAN [Suspect]
     Active Substance: RIVAROXABAN
     Indication: DEEP VEIN THROMBOSIS
     Route: 048
     Dates: start: 20160830, end: 20160907

REACTIONS (2)
  - Pulmonary embolism [Recovered/Resolved]
  - Pelvic venous thrombosis [Recovered/Resolved]

NARRATIVE: CASE EVENT DATE: 20160907
